FAERS Safety Report 6323357-3 (Version None)
Quarter: 2009Q3

REPORT INFORMATION
  Report Type: 
  Country: None (occurrence: None)
  Receive Date: 20090824
  Receipt Date: 20090424
  Transmission Date: 20100115
  Serious: No
  Sender: FDA-Public Use
  Company Number: US-ABBOTT-09P-163-0567159-00

PATIENT
  Sex: Female
  Weight: 69.916 kg

DRUGS (13)
  1. NIASPAN [Suspect]
     Indication: BLOOD CHOLESTEROL INCREASED
     Dates: start: 20090330
  2. LIPITOR [Concomitant]
     Indication: DRUG USE FOR UNKNOWN INDICATION
  3. VITAMIN B COMPLEX CAP [Concomitant]
     Indication: DRUG USE FOR UNKNOWN INDICATION
  4. HYZAAR [Concomitant]
     Indication: BLOOD PRESSURE
     Dosage: 100/12.5 MG ONCE DAILY
  5. CARTIA XT [Concomitant]
     Indication: BLOOD PRESSURE
  6. LOVAZA [Concomitant]
     Indication: BLOOD CHOLESTEROL
  7. LISINOPRIL [Concomitant]
     Indication: DRUG USE FOR UNKNOWN INDICATION
  8. METFORMIN HCL [Concomitant]
     Indication: DIABETES MELLITUS
  9. COQ10 [Concomitant]
     Indication: DRUG USE FOR UNKNOWN INDICATION
  10. FOLIC ACID [Concomitant]
     Indication: DRUG USE FOR UNKNOWN INDICATION
  11. ASPIRIN [Concomitant]
     Indication: DRUG USE FOR UNKNOWN INDICATION
  12. FOSINIPRIL [Concomitant]
     Indication: BLOOD PRESSURE
  13. FOSINIPRIL [Concomitant]
     Indication: RENAL DISORDER

REACTIONS (3)
  - DIARRHOEA [None]
  - FLUSHING [None]
  - NAUSEA [None]
